FAERS Safety Report 16667500 (Version 1)
Quarter: 2019Q3

REPORT INFORMATION
  Report Type: Spontaneous
  Country: DK (occurrence: DK)
  Receive Date: 20190805
  Receipt Date: 20190805
  Transmission Date: 20191004
  Serious: Yes (Hospitalization, Other)
  Sender: FDA-Public Use
  Company Number: DK-PFIZER INC-2019333129

PATIENT
  Age: 28 Year
  Sex: Male

DRUGS (4)
  1. ZESSLY [Suspect]
     Active Substance: INFLIXIMAB
     Dosage: 400 MG, UNK (400 MG UGE 0,2,6+8
     Route: 042
     Dates: start: 20190711
  2. METHOTREXATE. [Concomitant]
     Active Substance: METHOTREXATE
     Dosage: 25 MG, UNK
     Dates: start: 20180426
  3. ZESSLY [Suspect]
     Active Substance: INFLIXIMAB
     Indication: PSORIATIC ARTHROPATHY
     Dosage: 400 MG, UNK (400 MG UGE 0,2,6+8
     Route: 042
     Dates: start: 20190624
  4. FOLIMET [Concomitant]
     Active Substance: FOLIC ACID
     Dosage: 5 MG, UNK
     Dates: start: 20180426

REACTIONS (5)
  - Pyrexia [Recovered/Resolved]
  - Arthralgia [Recovered/Resolved]
  - Serum sickness [Recovered/Resolved]
  - Scleral hyperaemia [Recovered/Resolved]
  - Myalgia [Recovered/Resolved]

NARRATIVE: CASE EVENT DATE: 20190710
